FAERS Safety Report 7268704-3 (Version None)
Quarter: 2011Q1

REPORT INFORMATION
  Report Type: 
  Country: None (occurrence: None)
  Receive Date: 20110201
  Receipt Date: 20110201
  Transmission Date: 20110831
  Serious: Yes (Death, Hospitalization)
  Sender: FDA-Public Use
  Company Number: CZ-JNJFOC-20101208057

PATIENT
  Sex: Female
  Weight: 85 kg

DRUGS (20)
  1. FURON [Concomitant]
  2. TRIAMCINOLONE [Concomitant]
  3. ATORVASTATIN CALCIUM [Concomitant]
     Indication: PRODUCT USED FOR UNKNOWN INDICATION
  4. GOLIMUMAB [Suspect]
     Indication: RHEUMATOID ARTHRITIS
     Route: 058
  5. GOLIMUMAB [Suspect]
     Route: 058
  6. BLESSIN PLUS H [Concomitant]
  7. ACIDUM FOLICUM [Concomitant]
     Indication: RHEUMATOID ARTHRITIS
  8. VEROSPIRON [Concomitant]
  9. GOLIMUMAB [Suspect]
     Route: 058
  10. LOKREN [Concomitant]
  11. MEDROL [Concomitant]
     Indication: RHEUMATOID ARTHRITIS
  12. ORTANOL [Concomitant]
     Indication: GASTRITIS
  13. LOZAR [Concomitant]
  14. TENAXUM [Concomitant]
  15. SORBIFER [Concomitant]
  16. MILURIT [Suspect]
     Indication: PRODUCT USED FOR UNKNOWN INDICATION
  17. MTX [Concomitant]
     Indication: RHEUMATOID ARTHRITIS
  18. AMLODIPINE BESYLATE [Concomitant]
  19. HYPOTYLIN [Concomitant]
  20. DERMACYN [Concomitant]

REACTIONS (3)
  - RENAL FAILURE ACUTE [None]
  - SEPSIS [None]
  - DERMATITIS ALLERGIC [None]
